FAERS Safety Report 6648549-5 (Version None)
Quarter: 2010Q1

REPORT INFORMATION
  Report Type: 
  Country: None (occurrence: None)
  Receive Date: 20100319
  Receipt Date: 20100305
  Transmission Date: 20100710
  Serious: Yes (Other)
  Sender: FDA-Public Use
  Company Number: 1-21839880

PATIENT
  Sex: Female
  Weight: 104.3273 kg

DRUGS (12)
  1. LAMOTRIGINE [Suspect]
     Indication: DEPRESSION
     Dosage: 25 MG, ONCE, ORAL
     Route: 048
     Dates: start: 20100219, end: 20100219
  2. CITALOPRAM [Concomitant]
  3. NORVASC [Concomitant]
  4. LISINOPRIL/HCTZ FISH OIL [Concomitant]
  5. VITAMIN C [Concomitant]
  6. SUPER B COMPLEX [Concomitant]
  7. DEHYDROEPIANDROSTERONE [Concomitant]
  8. COQ10 [Concomitant]
  9. MULTI-VITAMIN [Concomitant]
  10. VITAMIN D 3 [Concomitant]
  11. AN UNSPECIFIED ANTIOXIDANT [Concomitant]
  12. LORATADINE [Concomitant]

REACTIONS (2)
  - OROPHARYNGEAL BLISTERING [None]
  - THROAT TIGHTNESS [None]
